FAERS Safety Report 9537534 (Version 2)
Quarter: 2013Q3

REPORT INFORMATION
  Report Type: Report from Study
  Country: JP (occurrence: JP)
  Receive Date: 20130919
  Receipt Date: 20130919
  Transmission Date: 20140515
  Serious: Yes (Death, Hospitalization)
  Sender: FDA-Public Use
  Company Number: JP-ABBVIE-13X-087-1113734-00

PATIENT
  Age: 84 Year
  Sex: Female

DRUGS (2)
  1. LIPACREON [Suspect]
     Indication: PANCREATIC INSUFFICIENCY
     Route: 048
     Dates: start: 20121001, end: 20130125
  2. LANSOPRAZOLE [Concomitant]
     Indication: PANCREATICODUODENECTOMY
     Route: 048
     Dates: end: 20130120

REACTIONS (1)
  - Bile duct cancer [Fatal]
